FAERS Safety Report 24216941 (Version 1)
Quarter: 2024Q3

REPORT INFORMATION
  Report Type: Spontaneous
  Country: US (occurrence: US)
  Receive Date: 20240816
  Receipt Date: 20240816
  Transmission Date: 20241016
  Serious: No
  Sender: SANOFI AVENTIS
  Company Number: US-SA-2023MK000090

PATIENT
  Age: 42 Year
  Sex: Male

DRUGS (6)
  1. AFREZZA [Suspect]
     Active Substance: INSULIN HUMAN
     Indication: Product used for unknown indication
     Dosage: 12 UNIT LOT
     Dates: start: 202203
  2. AFREZZA [Suspect]
     Active Substance: INSULIN HUMAN
     Dosage: 8 UNIT LOT
     Dates: start: 202203
  3. AFREZZA [Suspect]
     Active Substance: INSULIN HUMAN
     Dosage: 4 UNIT LOT
     Dates: start: 202203
  4. INSULIN HUMAN [Suspect]
     Active Substance: INSULIN HUMAN
     Indication: Product used for unknown indication
  5. INSULIN HUMAN [Suspect]
     Active Substance: INSULIN HUMAN
  6. INSULIN HUMAN [Suspect]
     Active Substance: INSULIN HUMAN

REACTIONS (3)
  - Drug ineffective [Unknown]
  - Blood glucose increased [Unknown]
  - Cough [Unknown]
